FAERS Safety Report 8915434 (Version 5)
Quarter: 2013Q3

REPORT INFORMATION
  Report Type: Spontaneous
  Country: US (occurrence: US)
  Receive Date: 20121119
  Receipt Date: 20130710
  Transmission Date: 20140515
  Serious: Yes (Hospitalization)
  Sender: FDA-Public Use
  Company Number: US-PFIZER INC-2012286560

PATIENT
  Age: 85 Year
  Sex: Female
  Weight: 63.5 kg

DRUGS (3)
  1. CELEBREX [Suspect]
     Indication: ARTHRITIS
     Dosage: 200 MG, ONCE A DAY/PRN
     Route: 048
     Dates: end: 2012
  2. CELEBREX [Suspect]
     Indication: ARTHROPATHY
  3. ATENOLOL [Concomitant]
     Indication: HYPERTENSION
     Dosage: UNK

REACTIONS (2)
  - Arthropathy [Unknown]
  - Nasopharyngitis [Unknown]
